FAERS Safety Report 6615707-5 (Version None)
Quarter: 2010Q1

REPORT INFORMATION
  Report Type: 
  Country: None (occurrence: None)
  Receive Date: 20100305
  Receipt Date: 20100222
  Transmission Date: 20100710
  Serious: Yes (Hospitalization)
  Sender: FDA-Public Use
  Company Number: CA-JNJFOC-20100209746

PATIENT
  Sex: Female

DRUGS (2)
  1. TRAMACET [Suspect]
     Indication: HERPES ZOSTER
     Route: 065
  2. LYRICA [Suspect]
     Indication: HERPES ZOSTER

REACTIONS (1)
  - PANCREATITIS [None]
